FAERS Safety Report 16659108 (Version 1)
Quarter: 2019Q3

REPORT INFORMATION
  Report Type: Other
  Country: AU (occurrence: AU)
  Receive Date: 20190802
  Receipt Date: 20190802
  Transmission Date: 20191004
  Serious: Yes (Life-Threatening, Hospitalization)
  Sender: FDA-Public Use
  Company Number: AU-ORCHID HEALTHCARE-2072662

PATIENT
  Age: 44 Year
  Sex: Female
  Weight: 68 kg

DRUGS (2)
  1. VENLAFAXINE HYDROCHLORIDE. [Suspect]
     Active Substance: VENLAFAXINE HYDROCHLORIDE
     Route: 065
  2. TEMAZEPAM. [Concomitant]
     Active Substance: TEMAZEPAM
     Route: 065

REACTIONS (16)
  - Tachycardia [Recovered/Resolved]
  - Hypotension [Recovered/Resolved]
  - Blood lactate dehydrogenase increased [Recovered/Resolved]
  - Disorientation [Recovered/Resolved]
  - Left ventricular failure [Recovered/Resolved]
  - Blood glucose decreased [Recovered/Resolved]
  - Overdose [Unknown]
  - Left ventricular dysfunction [Recovered/Resolved]
  - Delirium [Recovered/Resolved]
  - Coma scale abnormal [Recovered/Resolved]
  - Cardiomyopathy [Recovered/Resolved]
  - Mydriasis [Recovered/Resolved]
  - Generalised tonic-clonic seizure [Recovered/Resolved]
  - Antidepressant drug level above therapeutic [Recovered/Resolved]
  - Myoclonus [Recovered/Resolved]
  - Electrocardiogram QRS complex prolonged [Recovered/Resolved]
